FAERS Safety Report 9753208 (Version 1)
Quarter: 2013Q4

REPORT INFORMATION
  Report Type: Spontaneous
  Country: US (occurrence: US)
  Receive Date: 20131213
  Receipt Date: 20131213
  Transmission Date: 20140711
  Serious: No
  Sender: FDA-Public Use
  Company Number: US-GILEAD-2010-0027365

PATIENT
  Age: 47 Year
  Sex: Female

DRUGS (15)
  1. LETAIRIS [Suspect]
     Indication: PULMONARY ARTERIAL HYPERTENSION
     Route: 048
     Dates: start: 20090309
  2. SPIRONOLACTONE [Concomitant]
  3. PROTONIX [Concomitant]
  4. DIGOXIN [Concomitant]
  5. FUROSEMIDE [Concomitant]
  6. REVATIO [Concomitant]
  7. AZATHIOPRINE [Concomitant]
  8. CITALOPRAM [Concomitant]
  9. GLYBURIDE [Concomitant]
  10. FERROUS SULFATE [Concomitant]
  11. LANTUS [Concomitant]
  12. PREDNISONE [Concomitant]
  13. KLOR-CON [Concomitant]
  14. VITAMIN C [Concomitant]
  15. MULTIVITAMIN [Concomitant]

REACTIONS (2)
  - Anxiety [Recovered/Resolved]
  - Headache [Recovered/Resolved]
